FAERS Safety Report 8379912-2 (Version None)
Quarter: 2012Q2

REPORT INFORMATION
  Report Type: 
  Country: None (occurrence: None)
  Receive Date: 20120523
  Receipt Date: 20110926
  Transmission Date: 20120825
  Serious: Yes (Hospitalization)
  Sender: FDA-Public Use
  Company Number: US-BAYER-2010-008454

PATIENT
  Age: 35 Year
  Weight: 52.154 kg

DRUGS (3)
  1. ZAPP 24 [Concomitant]
     Indication: CONTRACEPTION
  2. YAZ [Suspect]
     Dosage: UNK
     Dates: start: 20070101, end: 20091001
  3. YAZ [Suspect]
     Indication: CONTRACEPTION
     Dosage: UNK
     Dates: start: 20070101, end: 20091001

REACTIONS (6)
  - GALLBLADDER DISORDER [None]
  - PAIN [None]
  - INJURY [None]
  - ANXIETY [None]
  - BILIARY DYSKINESIA [None]
  - CHOLECYSTITIS CHRONIC [None]
